FAERS Safety Report 5875057-1 (Version None)
Quarter: 2008Q3

REPORT INFORMATION
  Report Type: 
  Country: None (occurrence: None)
  Receive Date: 20080904
  Receipt Date: 20080827
  Transmission Date: 20090109
  Serious: Yes (Hospitalization)
  Sender: FDA-Public Use
  Company Number: 2008AL009953

PATIENT
  Sex: Female

DRUGS (1)
  1. DIGOXIN [Suspect]
     Dosage: UNK, UNK, PO
     Route: 048

REACTIONS (3)
  - DIZZINESS [None]
  - FALL [None]
  - ILL-DEFINED DISORDER [None]
